FAERS Safety Report 9338891 (Version 2)
Quarter: 2013Q2

REPORT INFORMATION
  Report Type: Spontaneous
  Country: US (occurrence: None)
  Receive Date: 20130603
  Receipt Date: 20130605
  Transmission Date: 20140414
  Serious: Yes (Hospitalization)
  Sender: FDA-Public Use
  Company Number: P0609

PATIENT
  Age: 63 Year
  Sex: Male

DRUGS (11)
  1. SIPULEUCEL-T [Suspect]
     Indication: PROSTATE CANCER
     Dosage: INTRAVENOUS (NOT OTHERWISE SPECIFIED)
     Route: 042
     Dates: start: 20120723, end: 20120723
  2. ALPHA LIPOTIC ACID (THIOCTIC ACID) [Concomitant]
  3. ASPIRIN (ACETYLSALICYLIC ACID) [Concomitant]
  4. BENADRYL (DIPHENHYDRAMINE HYDROCHLORIDE) [Concomitant]
  5. FLUTICASONE (FLUTOCASONE) [Concomitant]
  6. LYCOPENE (LYCOPENE) [Concomitant]
  7. VITAMIN B COMPLEX (VITAMIN B COMPLEX) [Concomitant]
  8. VITAMIN D3 (COLECALCIFEROL) [Suspect]
  9. LOSARTAN (LOSARTAN POTASSIUM) [Concomitant]
  10. MEGESTROL (MEGESTROL) [Concomitant]
  11. AMBIEN (ZOLPIDEM TARTRATE) [Concomitant]

REACTIONS (10)
  - Coronary artery disease [None]
  - Coronary artery occlusion [None]
  - Carotid arteriosclerosis [None]
  - Anaemia postoperative [None]
  - Post procedural haemorrhage [None]
  - Postoperative ileus [None]
  - White blood cell count decreased [None]
  - Alanine aminotransferase increased [None]
  - Aspartate aminotransferase increased [None]
  - Hepatic steatosis [None]
